FAERS Safety Report 9173251 (Version 1)
Quarter: 2013Q1

REPORT INFORMATION
  Report Type: Spontaneous
  Country: IT (occurrence: None)
  Receive Date: 20130314
  Receipt Date: 20130314
  Transmission Date: 20140127
  Serious: Yes (Hospitalization)
  Sender: FDA-Public Use
  Company Number: GER/ITL/13/0028448

PATIENT
  Age: 63 Year
  Sex: Male

DRUGS (8)
  1. RAMIPRIL [Suspect]
     Indication: HYPERTENSION
     Dosage: 2.5MG, 1 D, ORAL
     Route: 048
     Dates: start: 20130130, end: 20130208
  2. LEVOFLOXACIN [Suspect]
     Indication: RESPIRATORY TRACT INFECTION
     Dosage: 500 MG, 1D, ORAL
     Route: 048
     Dates: start: 20130130, end: 20130208
  3. CARDIOASPIRIN (ACETYLSALICYLIC ACID) [Concomitant]
  4. CARVEDILOL (CARVEDILOL) [Concomitant]
  5. CLOPIDOGREL (CLOPIDOGREL) [Concomitant]
  6. ATORVASTATIN (ATORVASTATIN CALCIUM TRIHYDRATE) [Concomitant]
  7. MEFORMIN HYDROCHLORIDE (METFORMIN HYDROCHLORIDE) [Concomitant]
  8. PANTOPRAZOLE (PANTOPRAZOLE SODIUM SESQUIHYDRATE) [Concomitant]

REACTIONS (4)
  - Pruritus [None]
  - Pruritus [None]
  - Oedema peripheral [None]
  - Localised oedema [None]
